FAERS Safety Report 5639926-X (Version None)
Quarter: 2008Q1

REPORT INFORMATION
  Report Type: 
  Country: None (occurrence: None)
  Receive Date: 20080225
  Receipt Date: 20080211
  Transmission Date: 20080703
  Serious: Yes (Hospitalization)
  Sender: FDA-Public Use
  Company Number: B0508644A

PATIENT
  Age: 21 Year
  Sex: Male

DRUGS (20)
  1. FORTAZ [Suspect]
     Indication: DRUG USE FOR UNKNOWN INDICATION
     Dosage: INTRAVENOUS
     Route: 042
     Dates: end: 20071123
  2. ZOFRAN [Suspect]
     Indication: DRUG USE FOR UNKNOWN INDICATION
     Dosage: ORAL
     Route: 048
     Dates: start: 20071123, end: 20071128
  3. CYTARABINE [Suspect]
     Indication: ACUTE MYELOID LEUKAEMIA
     Dosage: 1.8 GRAM(S)/TWICE PER DAY/INTRAVENOUS
     Route: 042
     Dates: start: 20071123, end: 20071127
  4. MITOXANTRONE HCL [Suspect]
     Indication: ACUTE MYELOID LEUKAEMIA
     Dosage: 21 MG/PER DAY/INTRAVENOUS
     Route: 042
     Dates: start: 20071123, end: 20071125
  5. CIFLOX INJECTION (CIFLOX) [Suspect]
     Indication: DRUG USE FOR UNKNOWN INDICATION
     Dosage: 500 MG/TWICE PER DAY/INTRAVENOUS
     Route: 042
     Dates: end: 20071125
  6. URATE OXIDASE INJECTION (RASBURICASE) [Suspect]
     Indication: DRUG USE FOR UNKNOWN INDICATION
     Dosage: INTRAVENOUS
     Route: 042
     Dates: start: 20071121, end: 20071124
  7. PANTOPRAZOLE (FORMULATION UNKNOWN) (PANTOPRAZOLE) [Suspect]
     Indication: DRUG USE FOR UNKNOWN INDICATION
     Dosage: ORAL
     Route: 048
     Dates: end: 20071130
  8. GEMTUZUMAB OZOGAMICIN INJECTION (GEMTUZUMAB OZOGAMICIN) [Suspect]
     Indication: DRUG USE FOR UNKNOWN INDICATION
     Dosage: INTRAVENOUS
     Route: 042
     Dates: start: 20071123, end: 20071129
  9. ACETAMINOPHEN [Concomitant]
  10. MORPHINE [Concomitant]
  11. NEFOPAM HYDROCHLORIDE [Concomitant]
  12. BROMAZEPAM [Concomitant]
  13. DAUNORUBICIN HCL [Concomitant]
  14. AMSACRINE [Concomitant]
  15. IDARUBICIN HCL [Concomitant]
  16. CORTICOSTEROID [Concomitant]
  17. METHOTREXATE [Concomitant]
  18. TAZOCILLINE [Concomitant]
  19. AMIKACIN [Concomitant]
  20. ZOLPIDEM [Concomitant]

REACTIONS (4)
  - BLOOD ALKALINE PHOSPHATASE INCREASED [None]
  - GAMMA-GLUTAMYLTRANSFERASE INCREASED [None]
  - LEUKAEMIA RECURRENT [None]
  - PANCREATITIS ACUTE [None]
